FAERS Safety Report 8563952-4 (Version None)
Quarter: 2012Q3

REPORT INFORMATION
  Report Type: 
  Country: None (occurrence: None)
  Receive Date: 20120803
  Receipt Date: 20120730
  Transmission Date: 20120928
  Serious: Yes (Hospitalization, Other)
  Sender: FDA-Public Use
  Company Number: PHHY2011BR42626

PATIENT
  Sex: Female
  Weight: 59 kg

DRUGS (7)
  1. MARAGUCINA [Concomitant]
     Indication: NERVOUSNESS
     Dosage: 1 DF (UNK), DAILY
     Route: 048
  2. CELESTAMINE TAB [Concomitant]
     Dosage: 8 MG, QD
     Dates: start: 20120126
  3. DIOVAN [Suspect]
     Indication: HYPERTENSION
     Dosage: 1 DF (160 MG), QD (MORNING)
     Route: 048
     Dates: start: 20090101
  4. CALCIUM CARBONATE [Concomitant]
     Indication: OSTEOPOROSIS
     Dosage: 600 MG, QD
     Route: 048
  5. ALENDRONATE SODIUM [Concomitant]
     Indication: BACK PAIN
  6. ALENDRONATE SODIUM [Concomitant]
     Indication: OSTEOPOROSIS
     Dosage: 1 DF (70 MG), QW
  7. CALCIUM CARBONATE [Concomitant]
     Indication: BACK PAIN

REACTIONS (12)
  - COUGH [None]
  - HEADACHE [None]
  - FEELING ABNORMAL [None]
  - PNEUMONIA [None]
  - LEUKAEMIA [None]
  - FATIGUE [None]
  - ASTHENIA [None]
  - HYPERTENSION [None]
  - SOMNOLENCE [None]
  - BRONCHITIS [None]
  - NECK PAIN [None]
  - MEMORY IMPAIRMENT [None]
